FAERS Safety Report 5202361-2 (Version None)
Quarter: 2006Q4

REPORT INFORMATION
  Report Type: 
  Country: None (occurrence: None)
  Receive Date: 20061012
  Receipt Date: 20060726
  Transmission Date: 20070319
  Serious: Yes (Hospitalization)
  Sender: FDA-Public Use
  Company Number: 2006S1000099

PATIENT
  Age: 79 Year
  Sex: Male

DRUGS (7)
  1. CUBICIN [Suspect]
     Indication: ENDOCARDITIS ENTEROCOCCAL
     Dosage: 500 MG; Q24H; IV
     Route: 042
  2. ACID SUPPRESSOR [Concomitant]
  3. ANTIDEPRESSANT [Concomitant]
  4. ENLARGED PROSTATE MEDICATION [Concomitant]
  5. TYLENOL [Concomitant]
  6. GLUCOSAMINE [Concomitant]
  7. VANCOMYCIN [Concomitant]

REACTIONS (6)
  - COUGH [None]
  - EOSINOPHILIA [None]
  - EOSINOPHILIC PNEUMONIA [None]
  - NIGHT SWEATS [None]
  - PULMONARY FIBROSIS [None]
  - PYREXIA [None]
